FAERS Safety Report 12778854 (Version 1)
Quarter: 2016Q3

REPORT INFORMATION
  Report Type: Other
  Country: NL (occurrence: NL)
  Receive Date: 20160926
  Receipt Date: 20160926
  Transmission Date: 20161109
  Serious: Yes (Hospitalization)
  Sender: FDA-Public Use
  Company Number: NL-NOVEL LABORATORIES, INC-2016-04247

PATIENT
  Age: 74 Year
  Sex: Male

DRUGS (3)
  1. ESKETAMINE [Concomitant]
     Active Substance: ESKETAMINE
     Indication: ANALGESIC THERAPY
     Route: 065
  2. MORPHINE [Suspect]
     Active Substance: MORPHINE
     Indication: ANALGESIC THERAPY
     Dosage: 10 MG
     Route: 065
  3. MORPHINE [Suspect]
     Active Substance: MORPHINE
     Route: 042

REACTIONS (2)
  - Toxicity to various agents [Recovered/Resolved]
  - Respiratory depression [Recovered/Resolved]
